FAERS Safety Report 19246646 (Version 1)
Quarter: 2021Q2

REPORT INFORMATION
  Report Type: Spontaneous
  Country: US (occurrence: US)
  Receive Date: 20210511
  Receipt Date: 20210511
  Transmission Date: 20210717
  Serious: Yes (Hospitalization)
  Sender: FDA-Public Use
  Company Number: None

PATIENT
  Age: 51 Year
  Sex: Female

DRUGS (25)
  1. VIT B?12 [Concomitant]
  2. BROVANA INHL NEB SOLN [Concomitant]
  3. OMEPRAZOLE. [Concomitant]
     Active Substance: OMEPRAZOLE
  4. ALBUTEROL INHL NEB SOLN [Concomitant]
     Active Substance: ALBUTEROL
  5. OPSUMIT [Suspect]
     Active Substance: MACITENTAN
     Indication: PULMONARY HYPERTENSION
     Route: 048
     Dates: start: 20190910
  6. METOCLOPRAMIDE. [Concomitant]
     Active Substance: METOCLOPRAMIDE
  7. ESTRACE [Concomitant]
     Active Substance: ESTRADIOL
  8. HYDROXYCHLOROQUINE [Concomitant]
     Active Substance: HYDROXYCHLOROQUINE
  9. ALBUTEROL HFA [Concomitant]
     Active Substance: ALBUTEROL SULFATE
  10. VITAMIN D3 [Concomitant]
     Active Substance: CHOLECALCIFEROL
  11. PULMICORT TURBUHALER [Concomitant]
     Active Substance: BUDESONIDE
  12. SILDENAFIL. [Concomitant]
     Active Substance: SILDENAFIL
  13. SERTRALINE [Concomitant]
     Active Substance: SERTRALINE HYDROCHLORIDE
  14. FLONASE [Concomitant]
     Active Substance: FLUTICASONE PROPIONATE
  15. STIOLTO RESPIMAT [Concomitant]
     Active Substance: OLODATEROL HYDROCHLORIDE\TIOTROPIUM BROMIDE MONOHYDRATE
  16. URSO FORTE [Concomitant]
     Active Substance: URSODIOL
  17. FLAXSEED [Concomitant]
     Active Substance: FLAX SEED
  18. TOPIRAMATE. [Concomitant]
     Active Substance: TOPIRAMATE
  19. BUPROPRION [Concomitant]
     Active Substance: BUPROPION
  20. OMEGA 3?6?9 [Concomitant]
     Active Substance: FISH OIL
  21. ATORVASTATIN [Concomitant]
     Active Substance: ATORVASTATIN
  22. PILOCARPINE. [Concomitant]
     Active Substance: PILOCARPINE
  23. ZADITOR OPHT DROP [Concomitant]
  24. CALCIUM CARBONATE. [Concomitant]
     Active Substance: CALCIUM CARBONATE
  25. SUCRALFATE. [Concomitant]
     Active Substance: SUCRALFATE

REACTIONS (4)
  - Diarrhoea [None]
  - Gastroenteritis viral [None]
  - Dyspnoea [None]
  - Nausea [None]

NARRATIVE: CASE EVENT DATE: 20210415
